FAERS Safety Report 8856740 (Version 1)
Quarter: 2012Q4

REPORT INFORMATION
  Report Type: 
  Country: US (occurrence: US)
  Receive Date: 20121023
  Receipt Date: 20121023
  Transmission Date: 20130627
  Serious: No
  Sender: FDA-Public Use
  Company Number: US-AMGEN-USASP2012056721

PATIENT
  Sex: Female

DRUGS (8)
  1. ENBREL [Suspect]
     Indication: PRODUCT USED FOR UNKNOWN INDICATION
     Dosage: 50 mg, qwk
     Route: 058
  2. IBUPROFEN [Concomitant]
     Dosage: 200 mg, UNK
  3. CODEINE [Concomitant]
     Dosage: 30-300mg
  4. PREDNISONE [Concomitant]
     Dosage: 2.5 mg, UNK
  5. SUDAFED                            /00076302/ [Concomitant]
     Dosage: 120 mg, UNK
  6. MUCINEX [Concomitant]
     Dosage: 1200 mg, UNK
  7. CALCIUM +D                         /00944201/ [Concomitant]
     Dosage: UNK
  8. VITAMIN C ACEROLA [Concomitant]
     Dosage: 100 mg, UNK

REACTIONS (5)
  - Injection site reaction [Unknown]
  - Injection site pruritus [Unknown]
  - Injection site urticaria [Unknown]
  - Sinusitis [Unknown]
  - Headache [Unknown]
